FAERS Safety Report 15352610 (Version 2)
Quarter: 2019Q2

REPORT INFORMATION
  Report Type: Report from Study
  Country: US (occurrence: US)
  Receive Date: 20180905
  Receipt Date: 20190621
  Transmission Date: 20190711
  Serious: Yes (Hospitalization, Other)
  Sender: FDA-Public Use
  Company Number: US-SA-2018SA240692

PATIENT
  Age: 38 Year
  Sex: Female

DRUGS (12)
  1. TYSABRI [Concomitant]
     Active Substance: NATALIZUMAB
     Indication: MULTIPLE SCLEROSIS RELAPSE
     Dosage: UNK UNK, UNK
     Route: 042
  2. FENTANYL. [Concomitant]
     Active Substance: FENTANYL
     Dosage: UNK UNK, UNK
     Route: 065
  3. LINZESS [Concomitant]
     Active Substance: LINACLOTIDE
     Dosage: UNK UNK, QD
     Route: 065
  4. NEXIUM I.V. [Concomitant]
     Active Substance: ESOMEPRAZOLE SODIUM
     Dosage: UNK UNK, QD
     Route: 065
  5. LYRICA [Concomitant]
     Active Substance: PREGABALIN
     Dosage: 75 MG, QD
     Route: 065
  6. LYRICA [Concomitant]
     Active Substance: PREGABALIN
     Dosage: 300 MG, HS
  7. ALEMTUZUMAB [Suspect]
     Active Substance: ALEMTUZUMAB
     Indication: MULTIPLE SCLEROSIS
     Dosage: 1 VIAL, QD
     Route: 041
     Dates: start: 20180129, end: 20180202
  8. CELEBREX [Concomitant]
     Active Substance: CELECOXIB
     Dosage: UNK UNK, QD
     Route: 065
  9. REBIF [Concomitant]
     Active Substance: INTERFERON BETA-1A
     Indication: MULTIPLE SCLEROSIS RELAPSE
     Dosage: UNK UNK, UNK
     Route: 065
  10. ROXICODONE [Concomitant]
     Active Substance: OXYCODONE HYDROCHLORIDE
     Dosage: 15 MG, QID
     Route: 065
  11. CYMBALTA [Concomitant]
     Active Substance: DULOXETINE HYDROCHLORIDE
     Dosage: 60 MG, QD
     Route: 065
  12. ZANAFLEX [Concomitant]
     Active Substance: TIZANIDINE HYDROCHLORIDE
     Dosage: 4 MG, TID
     Route: 065

REACTIONS (18)
  - Noninfective encephalitis [Recovering/Resolving]
  - Atrial fibrillation [Recovered/Resolved]
  - Lymphoedema [Recovering/Resolving]
  - Immune thrombocytopenic purpura [Recovered/Resolved]
  - Petechiae [Recovered/Resolved]
  - Blood pressure decreased [Recovered/Resolved]
  - Heart rate decreased [Recovered/Resolved]
  - Hospitalisation [Unknown]
  - Epistaxis [Recovered/Resolved]
  - Contusion [Unknown]
  - Platelet count decreased [Recovered/Resolved]
  - Menorrhagia [Not Recovered/Not Resolved]
  - Asthenia [Recovered/Resolved]
  - Rash [Recovered/Resolved]
  - Cellulitis [Recovering/Resolving]
  - Condition aggravated [Not Recovered/Not Resolved]
  - Fall [Recovered/Resolved]
  - Dyspraxia [Recovering/Resolving]

NARRATIVE: CASE EVENT DATE: 201806
